FAERS Safety Report 4448937-1 (Version None)
Quarter: 2004Q3

REPORT INFORMATION
  Report Type: 
  Country: None (occurrence: None)
  Receive Date: 20040909
  Receipt Date: 20040820
  Transmission Date: 20050211
  Serious: Yes (Hospitalization)
  Sender: FDA-Public Use
  Company Number: USA040876181

PATIENT
  Age: 45 Year

DRUGS (4)
  1. ZYPREXA [Suspect]
     Indication: BIPOLAR DISORDER
     Dosage: 5 MG/1 DAY
  2. LITHIUM [Concomitant]
  3. PAXIL [Concomitant]
  4. DEXEDRINE (DEXAMFETAMINE SULFATE) [Concomitant]

REACTIONS (4)
  - ASTHENIA [None]
  - DRUG INTERACTION [None]
  - DYSARTHRIA [None]
  - PYREXIA [None]
